APPROVED DRUG PRODUCT: KLOR-CON M10
Active Ingredient: POTASSIUM CHLORIDE
Strength: 10MEQ
Dosage Form/Route: TABLET, EXTENDED RELEASE;ORAL
Application: A074726 | Product #002 | TE Code: AB1
Applicant: UPSHER SMITH LABORATORIES LLC
Approved: Aug 9, 2000 | RLD: No | RS: No | Type: RX